FAERS Safety Report 15331738 (Version 2)
Quarter: 2018Q3

REPORT INFORMATION
  Report Type: Spontaneous
  Country: US (occurrence: US)
  Receive Date: 20180829
  Receipt Date: 20180925
  Transmission Date: 20181010
  Serious: Yes (Other)
  Sender: FDA-Public Use
  Company Number: US-SA-2018SA235061

PATIENT
  Sex: Female

DRUGS (1)
  1. LEMTRADA [Suspect]
     Active Substance: ALEMTUZUMAB
     Dosage: UNK
     Route: 041
     Dates: start: 20180730, end: 20180813

REACTIONS (8)
  - Electrocardiogram ST segment depression [Unknown]
  - Sinus tachycardia [Unknown]
  - Atelectasis [Unknown]
  - Palpitations [Unknown]
  - Heart rate abnormal [Unknown]
  - Rash pruritic [Recovering/Resolving]
  - Tachycardia [Unknown]
  - Chest X-ray abnormal [Unknown]

NARRATIVE: CASE EVENT DATE: 201808
